FAERS Safety Report 4889502-1 (Version None)
Quarter: 2006Q1

REPORT INFORMATION
  Report Type: 
  Country: None (occurrence: None)
  Receive Date: 20060120
  Receipt Date: 20060112
  Transmission Date: 20060701
  Serious: Yes (Disabling)
  Sender: FDA-Public Use
  Company Number: 2006006765

PATIENT
  Age: 63 Year
  Sex: Female
  Weight: 83 kg

DRUGS (3)
  1. LIPITOR [Suspect]
     Indication: BLOOD CHOLESTEROL
     Dosage: 20 MG (20 MG, 1 IN 1 D)
     Dates: end: 20051212
  2. NORVASC [Concomitant]
  3. ATACAND [Concomitant]

REACTIONS (7)
  - ACTIVITIES OF DAILY LIVING IMPAIRED [None]
  - ASTHMA [None]
  - BURNING SENSATION [None]
  - DIFFICULTY IN WALKING [None]
  - MOVEMENT DISORDER [None]
  - MUSCLE TWITCHING [None]
  - PAIN [None]
